FAERS Safety Report 4942897-2 (Version None)
Quarter: 2006Q1

REPORT INFORMATION
  Report Type: 
  Country: None (occurrence: None)
  Receive Date: 20060309
  Receipt Date: 20060222
  Transmission Date: 20060701
  Serious: Yes (Death, Hospitalization)
  Sender: FDA-Public Use
  Company Number: 2006-BP-02180RO

PATIENT
  Age: 77 Year
  Sex: Male

DRUGS (6)
  1. CYCLOPHOSPHAMIDE [Suspect]
     Indication: VASCULITIS
     Dosage: 0.66 GM/M2 (NR), NR
     Dates: start: 20040401, end: 20040601
  2. PREDNISOLONE [Suspect]
     Indication: VASCULITIS
     Dosage: 60 MG (NR); PO
     Route: 048
     Dates: start: 20040401
  3. METRONIDAZOLE [Suspect]
     Indication: STRONGYLOIDIASIS
     Dosage: NR (NR), NR
  4. CIPROFLOXACIN [Suspect]
     Indication: STRONGYLOIDIASIS
     Dosage: NR (NR), NR
     Dates: start: 20040701
  5. VANCOMYCIN [Suspect]
     Indication: STRONGYLOIDIASIS
     Dosage: NR (NR), NR
     Dates: start: 20040701
  6. IVERMECTIN (IVERMECTIN) [Suspect]
     Indication: STRONGYLOIDIASIS
     Dosage: 12 MG (NR); PO
     Route: 048
     Dates: start: 20040701, end: 20040701

REACTIONS (13)
  - ACUTE RESPIRATORY DISTRESS SYNDROME [None]
  - BLOOD ALKALINE PHOSPHATASE INCREASED [None]
  - GAMMA-GLUTAMYLTRANSFERASE INCREASED [None]
  - HYPOCHLORAEMIA [None]
  - HYPONATRAEMIA [None]
  - LEUKOPENIA [None]
  - MUCOSAL INFLAMMATION [None]
  - NORMOCHROMIC NORMOCYTIC ANAEMIA [None]
  - PNEUMONITIS [None]
  - STRONGYLOIDIASIS [None]
  - SUPERINFECTION [None]
  - THROMBOCYTOPENIA [None]
  - URTICARIA [None]
